FAERS Safety Report 6348701-2 (Version None)
Quarter: 2009Q3

REPORT INFORMATION
  Report Type: 
  Country: None (occurrence: None)
  Receive Date: 20090911
  Receipt Date: 20090902
  Transmission Date: 20100115
  Serious: Yes (Other)
  Sender: FDA-Public Use
  Company Number: US-JNJFOC-20090900961

PATIENT
  Sex: Male

DRUGS (2)
  1. REMICADE [Suspect]
     Indication: DRUG USE FOR UNKNOWN INDICATION
     Dosage: TOTAL OF 4 INFUSIONS
     Route: 042
     Dates: start: 20090101, end: 20090101
  2. ENTOCORT EC [Concomitant]

REACTIONS (1)
  - LEUKAEMIA [None]
